FAERS Safety Report 19804287 (Version 1)
Quarter: 2021Q3

REPORT INFORMATION
  Report Type: Spontaneous
  Country: US (occurrence: US)
  Receive Date: 20210908
  Receipt Date: 20210908
  Transmission Date: 20211014
  Serious: No
  Sender: FDA-Public Use
  Company Number: US-FARMAPROD-202104-0649

PATIENT
  Sex: Male

DRUGS (15)
  1. KLOR?CON 10 10 MEQ [Concomitant]
  2. WELLBUTRIN [Concomitant]
     Active Substance: BUPROPION HYDROCHLORIDE
     Dosage: SLOW RELEASE TABLET
  3. FUROSEMIDE. [Concomitant]
     Active Substance: FUROSEMIDE
  4. CLONAZEPAM. [Concomitant]
     Active Substance: CLONAZEPAM
  5. ALBUTEROL SULFATE HFA [Concomitant]
     Active Substance: ALBUTEROL SULFATE
  6. OXERVATE [Suspect]
     Active Substance: CENEGERMIN-BKBJ
     Indication: DRY EYE
  7. TRULICITY [Concomitant]
     Active Substance: DULAGLUTIDE
     Dosage: 1.5 MG/0.5 PEN INJECTOR
  8. MIRTAZAPINE. [Concomitant]
     Active Substance: MIRTAZAPINE
  9. LATUDA [Concomitant]
     Active Substance: LURASIDONE HYDROCHLORIDE
  10. ERYTHROMYCIN. [Concomitant]
     Active Substance: ERYTHROMYCIN
  11. TAMSULOSIN HCL [Concomitant]
     Active Substance: TAMSULOSIN HYDROCHLORIDE
  12. METFORMIN ER GASTRIC [Concomitant]
  13. MELATONIN [Concomitant]
     Active Substance: MELATONIN
  14. OXERVATE [Suspect]
     Active Substance: CENEGERMIN-BKBJ
     Indication: NEUROTROPHIC KERATOPATHY
     Route: 047
     Dates: start: 20210421
  15. OXERVATE [Suspect]
     Active Substance: CENEGERMIN-BKBJ
     Indication: CORNEAL DISORDER

REACTIONS (6)
  - Product dose omission issue [Unknown]
  - Eye pain [Unknown]
  - Eye swelling [Unknown]
  - Headache [Unknown]
  - Visual impairment [Unknown]
  - Wrong technique in product usage process [Unknown]
